FAERS Safety Report 9805237 (Version 1)
Quarter: 2014Q1

REPORT INFORMATION
  Report Type: Spontaneous
  Country: FR (occurrence: FR)
  Receive Date: 20140109
  Receipt Date: 20140109
  Transmission Date: 20141002
  Serious: Yes (Hospitalization)
  Sender: FDA-Public Use
  Company Number: FR-ROCHE-1261909

PATIENT
  Age: 35 Year
  Sex: Male

DRUGS (7)
  1. VALIUM [Suspect]
     Indication: PRODUCT USED FOR UNKNOWN INDICATION
     Route: 048
     Dates: start: 20130330, end: 20130330
  2. SERESTA [Suspect]
     Indication: PRODUCT USED FOR UNKNOWN INDICATION
     Route: 048
     Dates: start: 20130330, end: 20130330
  3. BUPRENORPHINE [Suspect]
     Indication: PRODUCT USED FOR UNKNOWN INDICATION
     Dosage: IN THE EVENING
     Route: 048
     Dates: start: 20130330, end: 20130330
  4. CYAMEMAZINE TARTRATE [Suspect]
     Indication: PRODUCT USED FOR UNKNOWN INDICATION
     Route: 048
     Dates: start: 20130330, end: 20130330
  5. ZYPREXA ZYDIS [Concomitant]
     Route: 065
  6. NOCTAMIDE [Concomitant]
     Route: 065
  7. CITALOPRAM [Concomitant]
     Route: 065

REACTIONS (1)
  - Coma [Recovered/Resolved]
